FAERS Safety Report 11703484 (Version 1)
Quarter: 2015Q4

REPORT INFORMATION
  Report Type: Spontaneous
  Country: CN (occurrence: CN)
  Receive Date: 20151105
  Receipt Date: 20151105
  Transmission Date: 20160304
  Serious: Yes (Other)
  Sender: FDA-Public Use
  Company Number: CN-GILEAD-2015-0181151

PATIENT
  Age: 42 Year
  Sex: Male

DRUGS (1)
  1. HEPSERA [Suspect]
     Active Substance: ADEFOVIR DIPIVOXIL
     Indication: CHRONIC HEPATITIS B
     Route: 065

REACTIONS (8)
  - Glomerular vascular disorder [Unknown]
  - Blood pressure increased [Unknown]
  - Urine output decreased [Unknown]
  - Renal injury [Unknown]
  - Blood creatinine increased [Unknown]
  - Cystatin C increased [Unknown]
  - Oedema [Unknown]
  - Hyperplasia [Unknown]
